FAERS Safety Report 13891427 (Version 10)
Quarter: 2019Q4

REPORT INFORMATION
  Report Type: Spontaneous
  Country: US (occurrence: US)
  Receive Date: 20170822
  Receipt Date: 20191018
  Transmission Date: 20200122
  Serious: No
  Sender: FDA-Public Use
  Company Number: US-PFIZER INC-2017361138

PATIENT
  Age: 62 Year
  Sex: Female

DRUGS (1)
  1. IBRANCE [Suspect]
     Active Substance: PALBOCICLIB
     Indication: BREAST CANCER FEMALE
     Dosage: 100 MG, CYCLIC [DAILY X 21 D, 7 OFF ]
     Route: 048
     Dates: start: 20170628

REACTIONS (3)
  - Fatigue [Unknown]
  - Diarrhoea [Unknown]
  - Alopecia [Unknown]

NARRATIVE: CASE EVENT DATE: 20171113
